FAERS Safety Report 16954202 (Version 1)
Quarter: 2019Q4

REPORT INFORMATION
  Report Type: Spontaneous
  Country: CH (occurrence: CH)
  Receive Date: 20191023
  Receipt Date: 20191023
  Transmission Date: 20200122
  Serious: Yes (Death)
  Sender: FDA-Public Use
  Company Number: CH-ELI_LILLY_AND_COMPANY-CH201910010050

PATIENT
  Age: 72 Year
  Sex: Male

DRUGS (3)
  1. LARTRUVO [Suspect]
     Active Substance: OLARATUMAB
     Indication: PRODUCT USED FOR UNKNOWN INDICATION
     Dosage: UNK, UNKNOWN
     Route: 065
  2. LARTRUVO [Suspect]
     Active Substance: OLARATUMAB
     Dosage: 900 MG, OTHER
     Route: 065
     Dates: start: 20180305
  3. LARTRUVO [Suspect]
     Active Substance: OLARATUMAB
     Dosage: 920 MG, OTHER
     Route: 065
     Dates: start: 20180326

REACTIONS (1)
  - Death [Fatal]
